FAERS Safety Report 11558054 (Version 1)
Quarter: 2015Q3

REPORT INFORMATION
  Report Type: Spontaneous
  Country: US (occurrence: US)
  Receive Date: 20150928
  Receipt Date: 20150928
  Transmission Date: 20151125
  Serious: Yes (Other)
  Sender: FDA-Public Use
  Company Number: US-JNJCP-30000305671

PATIENT
  Sex: Female

DRUGS (2)
  1. NEUTROGENA HEALTHY SKIN MAKEUP SUNSCREEN BROAD SPECTRUM SPF20 - BUFF 30 [Suspect]
     Active Substance: TITANIUM DIOXIDE
     Indication: PRODUCT USED FOR UNKNOWN INDICATION
     Route: 061
  2. NEUTROGENA CLEAR FACE BREAK OUT FREE SUNSCREEN BROAD SPECTRUM SPF30 [Suspect]
     Active Substance: AVOBENZONE\HOMOSALATE\OCTISALATE\OCTOCRYLENE\OXYBENZONE
     Indication: PRODUCT USED FOR UNKNOWN INDICATION
     Route: 061

REACTIONS (7)
  - Impaired work ability [None]
  - Immune system disorder [None]
  - Impetigo [Unknown]
  - Systemic lupus erythematosus [Unknown]
  - Application site hypersensitivity [Unknown]
  - Application site swelling [Unknown]
  - Food allergy [Unknown]
